FAERS Safety Report 10680115 (Version 1)
Quarter: 2014Q4

REPORT INFORMATION
  Report Type: Spontaneous
  Country: US (occurrence: US)
  Receive Date: 20141229
  Receipt Date: 20141229
  Transmission Date: 20150529
  Serious: Yes (Life-Threatening, Hospitalization)
  Sender: FDA-Public Use
  Company Number: US-BAYER-2014-188087

PATIENT
  Age: 23 Year
  Sex: Male

DRUGS (1)
  1. DIPHENHYDRAMINE HYDROCHLORIDE. [Suspect]
     Active Substance: DIPHENHYDRAMINE HYDROCHLORIDE
     Dosage: 2000-2500 MG

REACTIONS (8)
  - Defect conduction intraventricular [None]
  - Toxicity to various agents [None]
  - Generalised tonic-clonic seizure [None]
  - Sinus tachycardia [Recovered/Resolved]
  - Overdose [None]
  - Ventricular extrasystoles [None]
  - Hypotension [None]
  - Hypokalaemia [None]
